FAERS Safety Report 10686353 (Version 3)
Quarter: 2015Q1

REPORT INFORMATION
  Report Type: Report from Study
  Country: US (occurrence: US)
  Receive Date: 20141231
  Receipt Date: 20150122
  Transmission Date: 20150720
  Serious: Yes (Hospitalization)
  Sender: FDA-Public Use
  Company Number: US-MYLANLABS-2014SP004704

PATIENT

DRUGS (12)
  1. DILTIAZEM [Concomitant]
     Active Substance: DILTIAZEM
     Indication: CHEST PAIN
  2. ALTEPLASE [Concomitant]
     Active Substance: ALTEPLASE
     Indication: PROPHYLAXIS
     Dosage: UNK
     Dates: start: 20140411
  3. DILTIAZEM [Concomitant]
     Active Substance: DILTIAZEM
     Indication: ARRHYTHMIA
  4. AUGMENTIN [Concomitant]
     Active Substance: AMOXICILLIN\CLAVULANATE POTASSIUM
     Indication: PROPHYLAXIS
     Dosage: UNK
     Dates: start: 20140519
  5. CYTARABINE. [Suspect]
     Active Substance: CYTARABINE
     Indication: ACUTE MYELOID LEUKAEMIA
     Dosage: 2400 MG, 3 HR INFUSION BID ON DAYS 1, 3, AND 5
     Route: 042
     Dates: start: 20140723, end: 20140728
  6. PF-04449913 [Suspect]
     Active Substance: GLASDEGIB
     Indication: ACUTE MYELOID LEUKAEMIA
     Dosage: 100 MG, QD
     Route: 048
     Dates: start: 20140331
  7. METOPROLOL SUCCINATE. [Concomitant]
     Active Substance: METOPROLOL SUCCINATE
     Indication: PALPITATIONS
     Dosage: UNK
     Dates: start: 20140423
  8. METOPROLOL SUCCINATE. [Concomitant]
     Active Substance: METOPROLOL SUCCINATE
     Indication: ARRHYTHMIA
  9. ACYCLOVIR                          /00587301/ [Concomitant]
     Active Substance: ACYCLOVIR
     Indication: PROPHYLAXIS
     Dosage: UNK
     Dates: start: 20140317
  10. POTASSIUM CHLORIDE. [Concomitant]
     Active Substance: POTASSIUM CHLORIDE
     Indication: HYPOKALAEMIA
     Dosage: UNK
     Dates: start: 20140405
  11. DILTIAZEM [Concomitant]
     Active Substance: DILTIAZEM
     Indication: PALPITATIONS
     Dosage: UNK
     Dates: start: 20140510
  12. MAGNESIUM OXIDE. [Concomitant]
     Active Substance: MAGNESIUM OXIDE
     Indication: HYPOMAGNESAEMIA
     Dosage: UNK
     Dates: start: 20140423

REACTIONS (11)
  - Febrile neutropenia [Recovered/Resolved]
  - Dehydration [Unknown]
  - Malaise [Not Recovered/Not Resolved]
  - Feeling hot [Unknown]
  - Tachypnoea [Unknown]
  - Alanine aminotransferase increased [Unknown]
  - Tachycardia [Unknown]
  - Aspartate aminotransferase increased [Unknown]
  - Renal failure [Unknown]
  - Chills [Unknown]
  - Bacterial infection [Unknown]

NARRATIVE: CASE EVENT DATE: 20140514
